FAERS Safety Report 13911987 (Version 1)
Quarter: 2017Q3

REPORT INFORMATION
  Report Type: Spontaneous
  Country: FR (occurrence: FR)
  Receive Date: 20170828
  Receipt Date: 20170828
  Transmission Date: 20171127
  Serious: Yes (Death, Hospitalization)
  Sender: FDA-Public Use
  Company Number: FR-JNJFOC-20140825388

PATIENT
  Age: 75 Year
  Sex: Male

DRUGS (3)
  1. RIVOTRIL [Concomitant]
     Active Substance: CLONAZEPAM
     Route: 065
     Dates: start: 20141017
  2. XARELTO [Suspect]
     Active Substance: RIVAROXABAN
     Indication: ARRHYTHMIA
     Route: 048
     Dates: start: 20140210, end: 20140802
  3. XARELTO [Suspect]
     Active Substance: RIVAROXABAN
     Indication: CEREBROVASCULAR ACCIDENT PROPHYLAXIS
     Route: 048
     Dates: start: 20140210, end: 20140802

REACTIONS (5)
  - Infectious pleural effusion [Unknown]
  - General physical health deterioration [Unknown]
  - Pneumonia aspiration [Fatal]
  - Cerebral haematoma [Fatal]
  - Seizure [Unknown]

NARRATIVE: CASE EVENT DATE: 20140803
